FAERS Safety Report 5551762-1 (Version None)
Quarter: 2007Q4

REPORT INFORMATION
  Report Type: 
  Country: None (occurrence: None)
  Receive Date: 20071212
  Receipt Date: 20071130
  Transmission Date: 20080405
  Serious: Yes (Life-Threatening, Hospitalization)
  Sender: FDA-Public Use
  Company Number: RO-ELI_LILLY_AND_COMPANY-RO200712000488

PATIENT
  Age: 12 Year
  Sex: Male
  Weight: 28 kg

DRUGS (3)
  1. STRATTERA [Suspect]
     Indication: ATTENTION DEFICIT/HYPERACTIVITY DISORDER
     Dosage: 10 MG, DAILY (1/D)
     Route: 048
     Dates: start: 20070801
  2. STRATTERA [Suspect]
     Dosage: 20 MG, UNKNOWN
     Route: 048
     Dates: end: 20071116
  3. LEVOMEPROMAZINE [Concomitant]
     Dosage: UNK, UNKNOWN

REACTIONS (3)
  - ATTENTION-SEEKING BEHAVIOUR [None]
  - FALL [None]
  - FRACTURE [None]
